FAERS Safety Report 22153300 (Version 1)
Quarter: 2023Q1

REPORT INFORMATION
  Report Type: Spontaneous
  Country: US (occurrence: US)
  Receive Date: 20230329
  Receipt Date: 20230329
  Transmission Date: 20230417
  Serious: Yes (Death, Hospitalization, Other)
  Sender: FDA-Public Use
  Company Number: US-GILEAD-2023-0621993

PATIENT
  Sex: Female

DRUGS (1)
  1. VEKLURY [Suspect]
     Active Substance: REMDESIVIR
     Indication: COVID-19
     Route: 065

REACTIONS (6)
  - Cardio-respiratory arrest [Fatal]
  - Blood loss anaemia [Fatal]
  - Upper gastrointestinal haemorrhage [Fatal]
  - Chronic respiratory failure [Fatal]
  - COVID-19 pneumonia [Fatal]
  - Renal failure [Unknown]

NARRATIVE: CASE EVENT DATE: 20210101
